FAERS Safety Report 9701781 (Version 1)
Quarter: 2013Q4

REPORT INFORMATION
  Report Type: Spontaneous
  Country: US (occurrence: US)
  Receive Date: 20131121
  Receipt Date: 20131121
  Transmission Date: 20140711
  Serious: Yes (Other)
  Sender: FDA-Public Use
  Company Number: US-ABBVIE-13P-163-1168549-00

PATIENT
  Age: 53 Year
  Sex: Female
  Weight: 84.9 kg

DRUGS (2)
  1. HUMIRA [Suspect]
     Indication: RHEUMATOID ARTHRITIS
     Dates: start: 2011, end: 201308
  2. METHOTREXATE [Concomitant]
     Indication: PRODUCT USED FOR UNKNOWN INDICATION

REACTIONS (3)
  - Breast mass [Not Recovered/Not Resolved]
  - Abdominal mass [Not Recovered/Not Resolved]
  - B-cell lymphoma [Not Recovered/Not Resolved]
